FAERS Safety Report 5183423-5 (Version None)
Quarter: 2006Q4

REPORT INFORMATION
  Report Type: 
  Country: None (occurrence: None)
  Receive Date: 20061220
  Receipt Date: 20060112
  Transmission Date: 20070319
  Serious: No
  Sender: FDA-Public Use
  Company Number: US-GLAXOSMITHKLINE-A0588938A

PATIENT

DRUGS (1)
  1. TARGET NTS [Suspect]
     Indication: SMOKING CESSATION THERAPY

REACTIONS (3)
  - ABNORMAL DREAMS [None]
  - POOR QUALITY SLEEP [None]
  - SLEEP DISORDER [None]
